FAERS Safety Report 9727821 (Version 3)
Quarter: 2014Q1

REPORT INFORMATION
  Report Type: Report from Study
  Country: CA (occurrence: CA)
  Receive Date: 20131204
  Receipt Date: 20140224
  Transmission Date: 20141002
  Serious: Yes (Other)
  Sender: FDA-Public Use
  Company Number: CA-ROCHE-1308931

PATIENT
  Age: 71 Year
  Sex: Female
  Weight: 69.4 kg

DRUGS (8)
  1. RITUXAN [Suspect]
     Indication: WALDENSTROM^S MACROGLOBULINAEMIA
     Dosage: 8 WEEKS.
     Route: 042
     Dates: start: 20061206
  2. RITUXAN [Suspect]
     Dosage: RITUXAN WITHOUT CHEMO NOS
     Route: 042
     Dates: start: 20110314
  3. RITUXAN [Suspect]
     Dosage: RITUXAN WITHOUT CHEMO NOS
     Route: 042
     Dates: start: 20110328
  4. RITUXAN [Suspect]
     Dosage: THIS DOSING FREQUENCY ENDED 28-AUG-2013
     Route: 042
     Dates: start: 201209
  5. ACYCLOVIR [Concomitant]
     Route: 065
     Dates: end: 200704
  6. ACYCLOVIR [Concomitant]
     Route: 065
     Dates: start: 20110314
  7. SULFATRIM DS [Concomitant]
     Route: 065
     Dates: start: 200704, end: 200709
  8. SULFATRIM DS [Concomitant]
     Route: 065
     Dates: start: 20110328

REACTIONS (6)
  - Pneumonia [Recovered/Resolved]
  - White blood cell count decreased [Unknown]
  - Blood immunoglobulin M decreased [Not Recovered/Not Resolved]
  - Influenza [Unknown]
  - Drug intolerance [Unknown]
  - Drug ineffective [Unknown]
